FAERS Safety Report 7060844-7 (Version None)
Quarter: 2010Q4

REPORT INFORMATION
  Report Type: 
  Country: None (occurrence: None)
  Receive Date: 20101025
  Receipt Date: 20101013
  Transmission Date: 20110411
  Serious: Yes (Congenital Anomaly)
  Sender: FDA-Public Use
  Company Number: DK-WATSON-2010-13796

PATIENT

DRUGS (3)
  1. MONODOX [Suspect]
     Indication: DRUG EXPOSURE DURING PREGNANCY
     Dosage: UNK
     Route: 064
  2. ERYTHROMYCIN  (WATSON LABORATORIES) [Suspect]
     Indication: DRUG EXPOSURE DURING PREGNANCY
     Dosage: UNK
     Route: 064
  3. MUPIROCIN [Suspect]
     Indication: DRUG EXPOSURE DURING PREGNANCY
     Dosage: UNK
     Route: 061

REACTIONS (2)
  - CLEFT LIP [None]
  - MATERNAL DRUGS AFFECTING FOETUS [None]
